FAERS Safety Report 10966490 (Version 1)
Quarter: 2015Q1

REPORT INFORMATION
  Report Type: Spontaneous
  Country: GB (occurrence: GB)
  Receive Date: 20150330
  Receipt Date: 20150330
  Transmission Date: 20150721
  Serious: Yes (Other)
  Sender: FDA-Public Use
  Company Number: GB-PFIZER INC-2015098603

PATIENT
  Age: 40 Year
  Sex: Female
  Weight: 89 kg

DRUGS (6)
  1. EPADERM [Concomitant]
     Dosage: USE AS DIRECTED
     Dates: start: 20150309
  2. FEXOFENADINE [Concomitant]
     Active Substance: FEXOFENADINE\FEXOFENADINE HYDROCHLORIDE
     Dosage: 1 DF, 1X/DAY
     Dates: start: 20150309
  3. IBUPROFEN. [Suspect]
     Active Substance: IBUPROFEN
     Dosage: 1 DF, 3X/DAY
     Dates: start: 20150226
  4. BETAMETHASONE VALERATE. [Concomitant]
     Active Substance: BETAMETHASONE VALERATE
     Dosage: APPLY TWICE DAILY.
     Dates: start: 20150309
  5. CODEINE PHOSPHATE/PARACETAMOL [Concomitant]
     Dosage: TAKE 1 OR 2 4 TIMES A DAY
     Dates: start: 20150226
  6. PREDNISOLONE. [Concomitant]
     Active Substance: PREDNISOLONE
     Dosage: TAKE 6 ONCE A DAY FOR 7 DAYS
     Dates: start: 20150309

REACTIONS (2)
  - Skin reaction [Unknown]
  - Rash [Unknown]

NARRATIVE: CASE EVENT DATE: 20150309
